FAERS Safety Report 19212431 (Version 1)
Quarter: 2021Q2

REPORT INFORMATION
  Report Type: Spontaneous
  Country: US (occurrence: US)
  Receive Date: 20210504
  Receipt Date: 20210504
  Transmission Date: 20210717
  Serious: Yes (Hospitalization, Other)
  Sender: FDA-Public Use
  Company Number: US-AUROBINDO-AUR-APL-2021-017132

PATIENT
  Age: 10 Year
  Sex: Female
  Weight: 35 kg

DRUGS (13)
  1. ALFENTANIL. [Concomitant]
     Active Substance: ALFENTANIL
     Indication: LARYNGEAL MASK AIRWAY INSERTION
     Dosage: 0.125 MILLIGRAM
     Route: 065
  2. FENTANYL. [Concomitant]
     Active Substance: FENTANYL
     Indication: PRODUCT USED FOR UNKNOWN INDICATION
     Dosage: 0.01 MILLIGRAM (DURING THE 60 MINUTE PROCEDUR)
     Route: 042
  3. DIPHENHYDRAMINE. [Concomitant]
     Active Substance: DIPHENHYDRAMINE
     Indication: DYSTONIA
     Dosage: 25 MILLIGRAM
     Route: 042
  4. ONDANSETRON [Suspect]
     Active Substance: ONDANSETRON
     Indication: NAUSEA
     Dosage: 3 MILLIGRAM
     Route: 042
  5. MIDAZOLAM. [Concomitant]
     Active Substance: MIDAZOLAM
     Indication: PREMEDICATION
     Dosage: 10 MILLIGRAM
     Route: 048
  6. SEVOFLURANE. [Concomitant]
     Active Substance: SEVOFLURANE
     Indication: INDUCTION OF ANAESTHESIA
     Dosage: UNK
     Route: 042
  7. MORPHINE [Concomitant]
     Active Substance: MORPHINE
     Indication: PRODUCT USED FOR UNKNOWN INDICATION
     Dosage: 4 MILLIGRAM (DURING THE 60 MINUTE PROCEDURE)
     Route: 042
  8. KETOROLAC [Concomitant]
     Active Substance: KETOROLAC TROMETHAMINE
     Indication: PRODUCT USED FOR UNKNOWN INDICATION
     Dosage: 15 MILLIGRAM (DURING THE 60 MINUTE PROCEDURE)
     Route: 042
  9. CODEINE [Concomitant]
     Active Substance: CODEINE
     Indication: PAIN
     Dosage: UNK
     Route: 065
  10. PROPOFOL. [Suspect]
     Active Substance: PROPOFOL
     Indication: LARYNGEAL MASK AIRWAY INSERTION
     Dosage: 30 MILLIGRAM
     Route: 065
  11. DEXAMETHASONE. [Concomitant]
     Active Substance: DEXAMETHASONE
     Indication: PRODUCT USED FOR UNKNOWN INDICATION
     Dosage: 4 MILLIGRAM ((DURING THE 60 MINUTE PROCEDURE)
     Route: 042
  12. ROPIVACAINE. [Concomitant]
     Active Substance: ROPIVACAINE HYDROCHLORIDE
     Indication: PRODUCT USED FOR UNKNOWN INDICATION
     Dosage: UNK (4ML OF 0.5%)
     Route: 065
  13. ACETAMINOPHEN. [Concomitant]
     Active Substance: ACETAMINOPHEN
     Indication: PAIN
     Dosage: UNK
     Route: 065

REACTIONS (6)
  - Nausea [Unknown]
  - Dyskinesia [Unknown]
  - Movement disorder [Unknown]
  - Tremor [Unknown]
  - Dystonia [Unknown]
  - Seizure [Unknown]
